FAERS Safety Report 17515970 (Version 1)
Quarter: 2020Q1

REPORT INFORMATION
  Report Type: Spontaneous
  Country: DE (occurrence: DE)
  Receive Date: 20200309
  Receipt Date: 20200309
  Transmission Date: 20200409
  Serious: Yes (Other)
  Sender: FDA-Public Use
  Company Number: DE-PFIZER INC-2020099288

PATIENT
  Age: 40 Year
  Sex: Female
  Weight: 95 kg

DRUGS (12)
  1. VENLAFAXINE HYDROCHLORIDE. [Suspect]
     Active Substance: VENLAFAXINE HYDROCHLORIDE
     Dosage: 1 DF, UNK
  2. VENTOLAIR [Concomitant]
     Active Substance: BECLOMETHASONE DIPROPIONATE
     Dosage: ONE IN THE MORNING
  3. TREVILOR RETARD [Suspect]
     Active Substance: VENLAFAXINE HYDROCHLORIDE
     Dosage: 75 MG, UNK
  4. SPIRONOLACTON [Concomitant]
     Active Substance: SPIRONOLACTONE
     Dosage: 1 DF, 1X/DAY IN MORNING
  5. VENLAFAXINE HCL [Suspect]
     Active Substance: VENLAFAXINE HYDROCHLORIDE
     Dosage: 1 DF, UNK
  6. ASPIRIN. [Concomitant]
     Active Substance: ASPIRIN
     Dosage: ONE IN THE MORNING
  7. NEBIVOLOL. [Concomitant]
     Active Substance: NEBIVOLOL
     Dosage: 0.5 DF, 2X/DAY
  8. TORASEMID [Concomitant]
     Active Substance: TORSEMIDE
     Dosage: 1 DF, 1X/DAY IN MORNING
  9. LEVOCETIRIZIN [Concomitant]
     Active Substance: LEVOCETIRIZINE DIHYDROCHLORIDE
     Dosage: UNK UNK, AS NEEDED
  10. PANTOPRAZOL [PANTOPRAZOLE] [Concomitant]
     Active Substance: PANTOPRAZOLE
     Dosage: 1 DF, 1X/DAY IN MORNING
  11. VELMETIA [Concomitant]
     Active Substance: METFORMIN\SITAGLIPTIN
     Dosage: 1 DF (50/1000), MORNING
  12. VALSACOR [Concomitant]
     Active Substance: VALSARTAN
     Dosage: 0.5 DF, 2X/DAY

REACTIONS (4)
  - Diabetes mellitus [Unknown]
  - Cardiac failure [Unknown]
  - Drug dependence [Unknown]
  - Weight increased [Unknown]

NARRATIVE: CASE EVENT DATE: 20010515
